FAERS Safety Report 11871470 (Version 4)
Quarter: 2016Q1

REPORT INFORMATION
  Report Type: Spontaneous
  Country: FI (occurrence: FI)
  Receive Date: 20151228
  Receipt Date: 20160309
  Transmission Date: 20160526
  Serious: Yes (Other)
  Sender: FDA-Public Use
  Company Number: FI-SA-2015SA215082

PATIENT
  Age: 38 Year
  Sex: Male

DRUGS (1)
  1. AUBAGIO [Suspect]
     Active Substance: TERIFLUNOMIDE
     Route: 065
     Dates: start: 201501

REACTIONS (4)
  - Hypersensitivity vasculitis [Not Recovered/Not Resolved]
  - Eosinophilia [Unknown]
  - Diarrhoea [Unknown]
  - Atopy [Not Recovered/Not Resolved]

NARRATIVE: CASE EVENT DATE: 2015
